FAERS Safety Report 14370476 (Version 4)
Quarter: 2018Q1

REPORT INFORMATION
  Report Type: Spontaneous
  Country: US (occurrence: US)
  Receive Date: 20180110
  Receipt Date: 20180326
  Transmission Date: 20180509
  Serious: No
  Sender: FDA-Public Use
  Company Number: US-PFIZER INC-2018005359

PATIENT
  Age: 70 Year
  Sex: Female
  Weight: 40.82 kg

DRUGS (4)
  1. ACETAMINOPHEN. [Concomitant]
     Active Substance: ACETAMINOPHEN
     Indication: RHEUMATOID ARTHRITIS
     Dosage: 1000 MG (2 CAPLETS), TWICE DAILY
     Route: 048
     Dates: start: 1998
  2. XELJANZ [Suspect]
     Active Substance: TOFACITINIB CITRATE
     Indication: RHEUMATOID ARTHRITIS
     Dosage: 5 MG (ONE TABLET), TWICE DAILY
     Route: 048
     Dates: start: 20170929, end: 2017
  3. XELJANZ [Suspect]
     Active Substance: TOFACITINIB CITRATE
     Dosage: 5 MG, TWICE DAILY (2 TABLETS, 10 MG TOTAL PER DAY; ONE IN THE MORNING AND ONE IN THE EVENING)
     Route: 048
     Dates: end: 20180103
  4. XELJANZ [Suspect]
     Active Substance: TOFACITINIB CITRATE
     Dosage: 5 MG, TWICE DAILY (2 TABLETS, 10 MG TOTAL PER DAY; ONE IN THE MORNING AND ONE IN THE EVENING)
     Route: 048
     Dates: start: 2017, end: 20171229

REACTIONS (3)
  - Myalgia [Recovered/Resolved]
  - Rash [Recovered/Resolved]
  - Headache [Unknown]

NARRATIVE: CASE EVENT DATE: 20171229
